FAERS Safety Report 10239024 (Version 1)
Quarter: 2014Q2

REPORT INFORMATION
  Report Type: Spontaneous
  Country: US (occurrence: US)
  Receive Date: 20140616
  Receipt Date: 20140616
  Transmission Date: 20141212
  Serious: No
  Sender: FDA-Public Use
  Company Number: US-TEVA-488410USA

PATIENT
  Sex: Female

DRUGS (1)
  1. PARAGARD 380A [Suspect]
     Indication: CONTRACEPTION
     Route: 015
     Dates: start: 201002, end: 20140605

REACTIONS (3)
  - Pregnancy with contraceptive device [Unknown]
  - Exposure during pregnancy [Unknown]
  - Menstruation delayed [Unknown]
